FAERS Safety Report 5848833-9 (Version None)
Quarter: 2008Q3

REPORT INFORMATION
  Report Type: 
  Country: None (occurrence: None)
  Receive Date: 20080818
  Receipt Date: 20080806
  Transmission Date: 20090109
  Serious: Yes (Other)
  Sender: FDA-Public Use
  Company Number: SE-PFIZER INC-2008066017

PATIENT
  Sex: Female

DRUGS (1)
  1. XANOR [Suspect]

REACTIONS (3)
  - DRUG ABUSE [None]
  - HALLUCINATION [None]
  - WITHDRAWAL SYNDROME [None]
